FAERS Safety Report 6962587-4 (Version None)
Quarter: 2010Q3

REPORT INFORMATION
  Report Type: 
  Country: None (occurrence: None)
  Receive Date: 20100902
  Receipt Date: 20100826
  Transmission Date: 20110219
  Serious: Yes (Death)
  Sender: FDA-Public Use
  Company Number: JP-ELI_LILLY_AND_COMPANY-JP201008002866

PATIENT
  Sex: Male
  Weight: 41 kg

DRUGS (5)
  1. GEMCITABINE HCL [Suspect]
     Indication: PANCREATIC CARCINOMA NON-RESECTABLE
     Dosage: 1320 MG, OTHER
     Route: 042
     Dates: start: 20100730, end: 20100805
  2. TOCILIZUMAB [Suspect]
     Indication: PANCREATIC CARCINOMA NON-RESECTABLE
     Dosage: 336 MG, OTHER
     Route: 042
     Dates: start: 20100730, end: 20100730
  3. LASIX [Concomitant]
     Indication: OEDEMA PERIPHERAL
     Dosage: 20 MG, DAILY (1/D)
     Route: 048
     Dates: start: 20100730, end: 20100804
  4. LASIX [Concomitant]
     Dosage: 20 MG, 2/D
     Route: 048
     Dates: start: 20100805
  5. MAGLAX [Concomitant]
     Indication: CONSTIPATION
     Dosage: 330 MG, AS NEEDED
     Route: 048
     Dates: start: 20100715

REACTIONS (1)
  - DEATH [None]
